FAERS Safety Report 5815275-1 (Version None)
Quarter: 2008Q3

REPORT INFORMATION
  Report Type: 
  Country: None (occurrence: None)
  Receive Date: 20080718
  Receipt Date: 20080625
  Transmission Date: 20090109
  Serious: No
  Sender: FDA-Public Use
  Company Number: US-BOEHRINGER INGELHEIM GMBH, GERMANY-2008-BP-10390BP

PATIENT

DRUGS (3)
  1. SPIRIVA [Suspect]
  2. ADVAIR DISKUS 100/50 [Suspect]
  3. ALBUTEROL [Suspect]

REACTIONS (2)
  - GLOSSITIS [None]
  - GLOSSODYNIA [None]
